FAERS Safety Report 23182698 (Version 1)
Quarter: 2023Q4

REPORT INFORMATION
  Report Type: Spontaneous
  Country: CA (occurrence: CA)
  Receive Date: 20231114
  Receipt Date: 20231114
  Transmission Date: 20240110
  Serious: Yes (Life-Threatening, Hospitalization)
  Sender: FDA-Public Use
  Company Number: CA-PFIZER INC-202300362667

PATIENT
  Age: 61 Year
  Sex: Female

DRUGS (2)
  1. MIDAZOLAM [Suspect]
     Active Substance: MIDAZOLAM
     Dosage: 5 MG
  2. FENTANYL [Suspect]
     Active Substance: FENTANYL\FENTANYL CITRATE
     Dosage: 100 UG

REACTIONS (3)
  - Apnoea [Recovering/Resolving]
  - Oxygen saturation decreased [Recovering/Resolving]
  - Oxygen therapy [Recovering/Resolving]
